FAERS Safety Report 4512492-8 (Version None)
Quarter: 2004Q4

REPORT INFORMATION
  Report Type: 
  Country: None (occurrence: None)
  Receive Date: 20041008
  Receipt Date: 20040706
  Transmission Date: 20050328
  Serious: Yes (Other)
  Sender: FDA-Public Use
  Company Number: 373501

PATIENT
  Age: 13 Year
  Sex: Female
  Weight: 37.4 kg

DRUGS (7)
  1. FUZEON [Suspect]
     Indication: HIV INFECTION
     Dosage: 70 MG 1 PER 12 HOUR SUBUCTANEOUS
     Route: 058
     Dates: start: 20031211
  2. NORVIR [Concomitant]
  3. VIREAD [Concomitant]
  4. VIDEX EC [Concomitant]
  5. AGENERASE [Concomitant]
  6. BACTRIM DS (SULFAMETHOCAZOLE/TRIMETHOPRIM) [Concomitant]
  7. ZITHROMAX [Concomitant]

REACTIONS (6)
  - INJECTION SITE DISCOMFORT [None]
  - INJECTION SITE INFLAMMATION [None]
  - INJECTION SITE PAIN [None]
  - INJECTION SITE SWELLING [None]
  - SWELLING [None]
  - TENDERNESS [None]
